FAERS Safety Report 5480915-6 (Version None)
Quarter: 2007Q4

REPORT INFORMATION
  Report Type: 
  Country: None (occurrence: None)
  Receive Date: 20071004
  Receipt Date: 20070928
  Transmission Date: 20080405
  Serious: Yes (Death, Life-Threatening, Disabling, Other)
  Sender: FDA-Public Use
  Company Number: PHFR2007GB02848

PATIENT
  Age: 37 Year
  Sex: Male
  Weight: 120.5 kg

DRUGS (4)
  1. DICLOFENAC SODIUM [Suspect]
     Indication: PAIN IN EXTREMITY
     Dosage: 1DF, BID, ORAL
     Route: 048
     Dates: start: 20070518, end: 20070519
  2. TRAMADOL HCL [Suspect]
     Indication: PAIN IN EXTREMITY
     Dosage: ORAL
     Route: 048
     Dates: start: 20070518, end: 20070519
  3. AMITRIPTYLINE HCL [Suspect]
     Indication: DEPRESSION
     Dosage: 3 DF, QD, ORAL
     Route: 048
     Dates: start: 20060512, end: 20070519
  4. DULOXETINE HYDROCHLORIDE(DULOXETINE HYDROCHLORIDE) [Suspect]
     Indication: DEPRESSION
     Dosage: 1 DF, QD
     Dates: start: 20070404, end: 20070519

REACTIONS (3)
  - DEPRESSION [None]
  - PAIN IN EXTREMITY [None]
  - SUDDEN DEATH [None]
